FAERS Safety Report 8546339-X (Version None)
Quarter: 2012Q3

REPORT INFORMATION
  Report Type: 
  Country: None (occurrence: None)
  Receive Date: 20120727
  Receipt Date: 20111219
  Transmission Date: 20120928
  Serious: No
  Sender: FDA-Public Use
  Company Number: US-ASTRAZENECA-2011SE76616

PATIENT
  Age: 56 Year
  Sex: Male
  Weight: 72.6 kg

DRUGS (7)
  1. SOMA [Concomitant]
  2. OXYCODONE HCL [Concomitant]
  3. SEROQUEL [Suspect]
     Route: 048
  4. KLONOPIN [Concomitant]
     Indication: ANXIETY
  5. SIMVASTATIN [Concomitant]
     Indication: BLOOD CHOLESTEROL ABNORMAL
  6. SEROQUEL [Suspect]
     Indication: BIPOLAR I DISORDER
     Route: 048
  7. SEROQUEL [Suspect]
     Route: 048
     Dates: start: 20111201

REACTIONS (7)
  - MALAISE [None]
  - HEADACHE [None]
  - NIGHT SWEATS [None]
  - ABDOMINAL PAIN UPPER [None]
  - FEELING HOT [None]
  - INSOMNIA [None]
  - BLOOD TRIGLYCERIDES INCREASED [None]
